FAERS Safety Report 20503242 (Version 1)
Quarter: 2022Q1

REPORT INFORMATION
  Report Type: Spontaneous
  Country: NL (occurrence: NL)
  Receive Date: 20220222
  Receipt Date: 20220222
  Transmission Date: 20220423
  Serious: Yes (Hospitalization)
  Sender: FDA-Public Use
  Company Number: NL-AMNEAL PHARMACEUTICALS-2022-AMRX-00414

PATIENT
  Sex: Male

DRUGS (1)
  1. BACLOFEN [Suspect]
     Active Substance: BACLOFEN
     Indication: Product used for unknown indication
     Route: 037

REACTIONS (4)
  - Toxicity to various agents [Recovered/Resolved]
  - Brain stem syndrome [Recovered/Resolved]
  - Medical device site swelling [Recovered/Resolved]
  - Unresponsive to stimuli [Recovered/Resolved]
